FAERS Safety Report 5874074-5 (Version None)
Quarter: 2008Q3

REPORT INFORMATION
  Report Type: 
  Country: None (occurrence: None)
  Receive Date: 20080829
  Receipt Date: 20071203
  Transmission Date: 20090109
  Serious: Yes (Other)
  Sender: FDA-Public Use
  Company Number: 2008S1010830

PATIENT
  Age: 40 Year
  Sex: Female

DRUGS (3)
  1. CLARITHROMYCIN [Suspect]
     Indication: HELICOBACTER INFECTION
     Dosage: 500 MG;
     Dates: start: 20071031, end: 20071106
  2. AMOXICILLIN (AMOXICILLIN) (CON.) [Concomitant]
  3. OMEPRAZOLE (OMEPRAZOLE) (CON.) [Concomitant]

REACTIONS (3)
  - OEDEMA MOUTH [None]
  - ORAL PAIN [None]
  - PARAESTHESIA [None]
